FAERS Safety Report 23865189 (Version 3)
Quarter: 2024Q2

REPORT INFORMATION
  Report Type: Report from Study
  Country: US (occurrence: US)
  Receive Date: 20240517
  Receipt Date: 20240524
  Transmission Date: 20240715
  Serious: Yes (Other)
  Sender: FDA-Public Use
  Company Number: US-ABBVIE-5762375

PATIENT
  Sex: Male

DRUGS (2)
  1. CREON [Suspect]
     Active Substance: PANCRELIPASE AMYLASE\PANCRELIPASE LIPASE\PANCRELIPASE PROTEASE
     Indication: Product used for unknown indication
     Dosage: 24000 UNIT
     Route: 048
  2. CREON [Suspect]
     Active Substance: PANCRELIPASE AMYLASE\PANCRELIPASE LIPASE\PANCRELIPASE PROTEASE
     Indication: Product used for unknown indication
     Dosage: 32000 UNIT
     Route: 048

REACTIONS (6)
  - Pancreatic carcinoma [Not Recovered/Not Resolved]
  - Incorrect dose administered [Unknown]
  - Product physical issue [Not Recovered/Not Resolved]
  - Dysgeusia [Unknown]
  - Abdominal discomfort [Unknown]
  - Eructation [Unknown]
